FAERS Safety Report 7565381-9 (Version None)
Quarter: 2011Q2

REPORT INFORMATION
  Report Type: 
  Country: None (occurrence: None)
  Receive Date: 20110623
  Receipt Date: 20110615
  Transmission Date: 20111010
  Serious: No
  Sender: FDA-Public Use
  Company Number: US-BIOGENIDEC-2011BI013841

PATIENT
  Age: 56 Year
  Sex: Female

DRUGS (1)
  1. TYSABRI [Suspect]
     Indication: MULTIPLE SCLEROSIS
     Route: 042
     Dates: start: 20100930

REACTIONS (12)
  - APHASIA [None]
  - COORDINATION ABNORMAL [None]
  - READING DISORDER [None]
  - DEPRESSION [None]
  - MENTAL IMPAIRMENT [None]
  - BALANCE DISORDER [None]
  - PAIN IN EXTREMITY [None]
  - DISTURBANCE IN ATTENTION [None]
  - ACTIVITIES OF DAILY LIVING IMPAIRED [None]
  - COGNITIVE DISORDER [None]
  - FATIGUE [None]
  - ADVERSE DRUG REACTION [None]
